FAERS Safety Report 7054546-0 (Version None)
Quarter: 2010Q4

REPORT INFORMATION
  Report Type: 
  Country: None (occurrence: None)
  Receive Date: 20101020
  Receipt Date: 20101013
  Transmission Date: 20110411
  Serious: Yes (Life-Threatening)
  Sender: FDA-Public Use
  Company Number: ZA-ABBOTT-10P-143-0670934-00

PATIENT
  Age: 27 Year
  Sex: Female

DRUGS (1)
  1. REDUCTIL [Suspect]
     Indication: OBESITY
     Dosage: 10 MG: 1 CAP DAILY
     Route: 048
     Dates: start: 20100701, end: 20100901

REACTIONS (6)
  - ANXIETY [None]
  - DEPRESSION [None]
  - INSOMNIA [None]
  - JUDGEMENT IMPAIRED [None]
  - SELF ESTEEM DECREASED [None]
  - SUICIDAL IDEATION [None]
